FAERS Safety Report 9221106 (Version 2)
Quarter: 2013Q2

REPORT INFORMATION
  Report Type: Report from Study
  Country: US (occurrence: US)
  Receive Date: 20130409
  Receipt Date: 20130509
  Transmission Date: 20140414
  Serious: Yes (Life-Threatening, Hospitalization)
  Sender: FDA-Public Use
  Company Number: US-009507513-1304USA002720

PATIENT
  Age: 79 Year
  Sex: Male
  Weight: 79.3 kg

DRUGS (7)
  1. VORINOSTAT [Suspect]
     Indication: DIFFUSE LARGE B-CELL LYMPHOMA
     Dosage: ON DAYS 1-5 CYCLE=21 DAYS
     Route: 048
     Dates: start: 20130319
  2. VORINOSTAT [Suspect]
     Dosage: ON DAYS 1-5 CYCLE=21 DAYS
     Route: 048
     Dates: start: 20130416
  3. RITUXIMAB [Suspect]
     Indication: DIFFUSE LARGE B-CELL LYMPHOMA
     Dosage: 375 MG/M2, IV INFUSION ON DAY 3
     Route: 042
     Dates: start: 20130321
  4. CYCLOPHOSPHAMIDE [Suspect]
     Indication: DIFFUSE LARGE B-CELL LYMPHOMA
     Dosage: 750 MG/M2, IV OVER 30-60
     Route: 042
     Dates: start: 20130321
  5. DOXORUBICIN [Suspect]
     Indication: DIFFUSE LARGE B-CELL LYMPHOMA
     Dosage: 50 MG/M2, IVP ON DAY 3
     Route: 042
     Dates: start: 20130321
  6. VINCRISTINE [Suspect]
     Indication: DIFFUSE LARGE B-CELL LYMPHOMA
     Dosage: 1.4 MG/M2, IVP ON DAY 3
     Route: 042
     Dates: start: 20130321
  7. PREDNISONE [Suspect]
     Indication: DIFFUSE LARGE B-CELL LYMPHOMA
     Dosage: 10 MG, QD ON DAYS 3-7
     Route: 048
     Dates: start: 20130321

REACTIONS (5)
  - Muscular weakness [Recovered/Resolved]
  - Hypercalcaemia [Recovered/Resolved]
  - Dehydration [Recovered/Resolved]
  - Blood creatinine increased [Recovering/Resolving]
  - Myocardial infarction [Not Recovered/Not Resolved]
